FAERS Safety Report 19727693 (Version 1)
Quarter: 2021Q3

REPORT INFORMATION
  Report Type: Spontaneous
  Country: US (occurrence: US)
  Receive Date: 20210820
  Receipt Date: 20210820
  Transmission Date: 20211014
  Serious: No
  Sender: FDA-Public Use
  Company Number: None

PATIENT
  Age: 66 Year
  Sex: Male

DRUGS (2)
  1. COSENTYX [Suspect]
     Active Substance: SECUKINUMAB
     Indication: ANKYLOSING SPONDYLITIS
     Route: 058
     Dates: start: 20200609
  2. MODERNA COVID?19 VACCINE [Suspect]
     Active Substance: CX-024414

REACTIONS (1)
  - Lymphadenopathy [None]

NARRATIVE: CASE EVENT DATE: 20200311
